FAERS Safety Report 8092025-2 (Version None)
Quarter: 2012Q1

REPORT INFORMATION
  Report Type: 
  Country: None (occurrence: None)
  Receive Date: 20120129
  Receipt Date: 20111228
  Transmission Date: 20120608
  Serious: No
  Sender: FDA-Public Use
  Company Number: US-ABBOTT-11P-163-0869514-00

PATIENT
  Age: 62 Year
  Sex: Female

DRUGS (11)
  1. ASPIRIN [Concomitant]
     Indication: PROPHYLAXIS
     Dosage: DAILY
  2. TRAMADOL HCL [Concomitant]
     Indication: PAIN
  3. CALCIUM [Concomitant]
     Indication: PRODUCT USED FOR UNKNOWN INDICATION
     Dosage: DAILY
  4. SYMBICORT [Concomitant]
     Indication: CHRONIC OBSTRUCTIVE PULMONARY DISEASE
     Dosage: DAILY
  5. HUMIRA [Suspect]
     Indication: RHEUMATOID ARTHRITIS
     Dates: start: 20110928, end: 20111026
  6. TOPROL-XL [Concomitant]
     Indication: TACHYCARDIA
     Dosage: DAILY
  7. NORVASC [Concomitant]
     Indication: HYPERTENSION
     Dosage: DAILY
  8. SPIRIVA [Concomitant]
     Indication: CHRONIC OBSTRUCTIVE PULMONARY DISEASE
     Dosage: DAILY
  9. HYDROCHLOROTHIAZIDE [Concomitant]
     Indication: HYPERTENSION
     Dosage: 1/2 PILL DAILY
  10. ALBUTEROL [Concomitant]
     Indication: DYSPNOEA
  11. COZAAR [Concomitant]
     Indication: HYPERTENSION
     Dosage: DAILY

REACTIONS (5)
  - PSORIASIS [None]
  - OEDEMA PERIPHERAL [None]
  - COUGH [None]
  - WEIGHT INCREASED [None]
  - SPUTUM PURULENT [None]
